FAERS Safety Report 5909596-1 (Version None)
Quarter: 2008Q4

REPORT INFORMATION
  Report Type: 
  Country: None (occurrence: None)
  Receive Date: 20081002
  Receipt Date: 20080926
  Transmission Date: 20090506
  Serious: Yes (Death, Life-Threatening, Hospitalization, Disabling)
  Sender: FDA-Public Use
  Company Number: 2008EN000140

PATIENT
  Age: 2 Year
  Sex: Male
  Weight: 10 kg

DRUGS (2)
  1. ADAGEN [Suspect]
     Indication: COMBINED IMMUNODEFICIENCY
     Dosage: 0.75 ML;BIW;SC
     Route: 058
  2. ANTIBIOTICS [Concomitant]

REACTIONS (6)
  - BRAIN ABSCESS [None]
  - CONVULSION [None]
  - LUNG ABSCESS [None]
  - MENINGITIS HAEMOPHILUS [None]
  - PNEUMONIA [None]
  - RESPIRATORY FAILURE [None]
